FAERS Safety Report 7376324-5 (Version None)
Quarter: 2011Q1

REPORT INFORMATION
  Report Type: 
  Country: None (occurrence: None)
  Receive Date: 20110316
  Receipt Date: 20110304
  Transmission Date: 20110831
  Serious: Yes (Hospitalization)
  Sender: FDA-Public Use
  Company Number: 2011SP005273

PATIENT
  Age: 34 Year
  Sex: Male

DRUGS (2)
  1. REBETOL [Suspect]
     Indication: HEPATITIS C
     Dosage: 1200 MG;PO
     Route: 048
     Dates: start: 20101130
  2. INTRON A [Suspect]
     Indication: HEPATITIS C
     Dosage: IV
     Route: 042
     Dates: start: 20101130

REACTIONS (3)
  - CELLULITIS STAPHYLOCOCCAL [None]
  - NEUTROPHIL COUNT DECREASED [None]
  - HAEMOGLOBIN DECREASED [None]
